FAERS Safety Report 18674640 (Version 1)
Quarter: 2020Q4

REPORT INFORMATION
  Report Type: Other
  Country: EG (occurrence: EG)
  Receive Date: 20201228
  Receipt Date: 20201228
  Transmission Date: 20210114
  Serious: Yes (Hospitalization, Other)
  Sender: FDA-Public Use
  Company Number: EG-UMEDICA-000027

PATIENT
  Sex: Male

DRUGS (4)
  1. ROSUVASTATIN. [Suspect]
     Active Substance: ROSUVASTATIN
     Indication: TYPE IIA HYPERLIPIDAEMIA
     Dosage: 40 MG DAILY FOR 1 MONTH
  2. ROSUVASTATIN. [Suspect]
     Active Substance: ROSUVASTATIN
     Indication: TYPE IIA HYPERLIPIDAEMIA
     Dosage: 10 MG DAILY
  3. ROSUVASTATIN. [Suspect]
     Active Substance: ROSUVASTATIN
     Indication: TYPE IIA HYPERLIPIDAEMIA
     Dosage: 20 MG DAILY FOR 5 WEEKS
  4. ROSUVASTATIN. [Suspect]
     Active Substance: ROSUVASTATIN
     Indication: TYPE IIA HYPERLIPIDAEMIA
     Dosage: 5 MG DAILY FOR 3 MONTHS

REACTIONS (5)
  - Musculoskeletal chest pain [Recovered/Resolved]
  - Insomnia [Recovered/Resolved]
  - Glycosylated haemoglobin increased [Recovered/Resolved]
  - Incorrect dose administered [Recovered/Resolved]
  - Myocardial infarction [Recovered/Resolved]
